FAERS Safety Report 21415054 (Version 2)
Quarter: 2022Q4

REPORT INFORMATION
  Report Type: Spontaneous
  Country: US (occurrence: US)
  Receive Date: 20221006
  Receipt Date: 20221015
  Transmission Date: 20230113
  Serious: Yes (Hospitalization, Other)
  Sender: FDA-Public Use
  Company Number: US-CHIESI-2022CHF05086

PATIENT
  Age: 16 Year
  Sex: Male
  Weight: 39.92 kg

DRUGS (13)
  1. BETHKIS [Suspect]
     Active Substance: TOBRAMYCIN
     Indication: Cerebral palsy
     Dosage: 300 MILLIGRAM, BID
     Route: 055
     Dates: start: 20210519
  2. BETHKIS [Suspect]
     Active Substance: TOBRAMYCIN
     Indication: Cystic fibrosis lung
  3. BETHKIS [Suspect]
     Active Substance: TOBRAMYCIN
     Indication: Off label use
  4. ALBUTEROL SULFATE [Concomitant]
     Active Substance: ALBUTEROL SULFATE
     Indication: Cough
     Dosage: UNK MILLIGRAM PER MILLILITRE
  5. ALBUTEROL SULFATE [Concomitant]
     Active Substance: ALBUTEROL SULFATE
     Indication: Wheezing
  6. PROAIR HFA [Concomitant]
     Active Substance: ALBUTEROL SULFATE
     Indication: Cough
     Dosage: 2 DOSAGE FORM, QD
  7. SCOPOLAMINE [Concomitant]
     Active Substance: SCOPOLAMINE
     Indication: Product used for unknown indication
     Dosage: 1 MILLIGRAM
  8. GLYCOPYRROLATE [Concomitant]
     Active Substance: GLYCOPYRROLATE
     Indication: Secretion discharge
     Dosage: 1 MILLIGRAM, QD
     Route: 048
  9. BUDESONIDE [Concomitant]
     Active Substance: BUDESONIDE
     Indication: Product used for unknown indication
     Dosage: UNK UNK, QD
  10. FAMOTIDINE [Concomitant]
     Active Substance: FAMOTIDINE
     Indication: Product used for unknown indication
     Dosage: UNK UNK, QD
     Route: 048
  11. LEVETIRACETAM [Concomitant]
     Active Substance: LEVETIRACETAM
     Indication: Product used for unknown indication
     Dosage: 100 MILLIGRAM PER MILLILITRE, QD
  12. ROBINUL [Concomitant]
     Active Substance: GLYCOPYRROLATE
     Indication: Product used for unknown indication
     Dosage: UNK
  13. SCOPOLAMINE [Concomitant]
     Active Substance: SCOPOLAMINE
     Indication: Product used for unknown indication
     Dosage: UNK

REACTIONS (11)
  - Seizure [Recovered/Resolved]
  - Stenotrophomonas test positive [Recovering/Resolving]
  - Achromobacter infection [Recovering/Resolving]
  - Serratia test positive [Recovering/Resolving]
  - Abdominal distension [Not Recovered/Not Resolved]
  - Tachypnoea [Recovering/Resolving]
  - Pneumonia [Recovering/Resolving]
  - Stenotrophomonas infection [Recovering/Resolving]
  - Pseudomonas test positive [Recovering/Resolving]
  - Hyponatraemia [Recovering/Resolving]
  - Off label use [Not Recovered/Not Resolved]

NARRATIVE: CASE EVENT DATE: 20210519
